FAERS Safety Report 9822255 (Version 1)
Quarter: 2014Q1

REPORT INFORMATION
  Report Type: Spontaneous
  Country: US (occurrence: US)
  Receive Date: 20140116
  Receipt Date: 20140116
  Transmission Date: 20141002
  Serious: Yes (Other)
  Sender: FDA-Public Use
  Company Number: US-JNJFOC-20140104833

PATIENT
  Age: 3 Decade
  Sex: Male

DRUGS (1)
  1. REMICADE [Suspect]
     Indication: CROHN^S DISEASE
     Route: 042
     Dates: start: 201206

REACTIONS (3)
  - Renal disorder [Not Recovered/Not Resolved]
  - Drug dose omission [Not Recovered/Not Resolved]
  - Incorrect product storage [Unknown]
